FAERS Safety Report 9153678 (Version 3)
Quarter: 2013Q1

REPORT INFORMATION
  Report Type: Spontaneous
  Country: FR (occurrence: None)
  Receive Date: 20130307
  Receipt Date: 20130318
  Transmission Date: 20140127
  Serious: Yes (Death)
  Sender: FDA-Public Use
  Company Number: 2013068833

PATIENT
  Age: 90 Year
  Sex: Female

DRUGS (7)
  1. FRAGMINE (DALTEPARIN SODIUM) SOLUTION FOR INJECTION [Suspect]
     Route: 058
     Dates: start: 20121218, end: 20121220
  2. RAMIPRIL [Suspect]
     Dosage: 1X/DAY
     Dates: start: 20121206, end: 20121227
  3. BISOPROLOL FUMARATE [Suspect]
     Dosage: 1X/DAY,
     Route: 048
     Dates: start: 20121221, end: 20121227
  4. AMOXICILLIN TRIHYDRATE [Suspect]
     Indication: BRONCHITIS
     Dosage: 3X/DAY
     Route: 048
     Dates: start: 20121207, end: 20121214
  5. AMIODARONE [Suspect]
     Dosage: 1X/DAY
     Route: 048
     Dates: start: 20121218, end: 20121227
  6. WARFARIN SODIUM [Suspect]
     Dosage: 1X/DAY
     Route: 048
     Dates: start: 20121218, end: 20121227
  7. FUROSEMIDE (FUROSEMIDE) [Suspect]
     Indication: HAEMATOMA
     Route: 048
     Dates: start: 20121204, end: 20121227

REACTIONS (3)
  - Dermatitis bullous [None]
  - Toxic epidermal necrolysis [None]
  - Blood creatinine increased [None]
